FAERS Safety Report 10087355 (Version 2)
Quarter: 2014Q4

REPORT INFORMATION
  Report Type: Spontaneous
  Country: US (occurrence: US)
  Receive Date: 20140418
  Receipt Date: 20141021
  Transmission Date: 20150528
  Serious: Yes (Other)
  Sender: FDA-Public Use
  Company Number: US-NAPPMUNDI-USA-2014-0112246

PATIENT
  Age: 28 Year
  Sex: Female

DRUGS (7)
  1. HEROIN [Suspect]
     Active Substance: DIACETYLMORPHINE
     Indication: DRUG ABUSE
     Dosage: UNKNOWN
  2. COCAINE [Suspect]
     Active Substance: COCAINE
     Indication: DRUG ABUSE
     Dosage: UNKNOWN
  3. OXYCONTIN [Suspect]
     Active Substance: OXYCODONE HYDROCHLORIDE
     Indication: DRUG ABUSE
     Dosage: UNK
     Route: 065
  4. OPANA [Suspect]
     Active Substance: OXYMORPHONE HYDROCHLORIDE
     Indication: DRUG ABUSE
     Dosage: UNKNOWN
  5. ALCOHOL. [Suspect]
     Active Substance: ALCOHOL
     Indication: ALCOHOL ABUSE
     Dosage: UNKNOWN
  6. HYDROCODONE [Suspect]
     Active Substance: HYDROCODONE
     Indication: DRUG ABUSE
     Dosage: UNKNOWN
  7. ECSTASY [Suspect]
     Active Substance: METHYLENEDIOXYMETHAMPHETAMINE
     Indication: DRUG ABUSE
     Dosage: UNKNOWN

REACTIONS (3)
  - Substance abuse [Unknown]
  - Drug dependence [Unknown]
  - Exposure during pregnancy [Unknown]
